FAERS Safety Report 24251507 (Version 1)
Quarter: 2024Q3

REPORT INFORMATION
  Report Type: Other
  Country: ES (occurrence: ES)
  Receive Date: 20240826
  Receipt Date: 20240826
  Transmission Date: 20241017
  Serious: Yes (Other)
  Sender: IBSA INSTITUT BIOCHIMIQUE
  Company Number: ES-IBSA PHARMA INC.-2024IBS000380

PATIENT

DRUGS (3)
  1. LEVOTHYROXINE SODIUM [Suspect]
     Active Substance: LEVOTHYROXINE SODIUM
     Indication: Hypothyroidism
     Dosage: UNK
     Route: 048
     Dates: start: 2022
  2. RYBELSUS [Suspect]
     Active Substance: SEMAGLUTIDE
     Indication: Obesity
     Dosage: UNK
     Route: 065
     Dates: start: 202404, end: 202406
  3. OZEMPIC [Concomitant]
     Active Substance: SEMAGLUTIDE
     Indication: Product used for unknown indication
     Dosage: UNK
     Route: 048
     Dates: start: 202306, end: 202404

REACTIONS (2)
  - Hypothyroidism [Recovered/Resolved]
  - Medication error [Unknown]

NARRATIVE: CASE EVENT DATE: 20240401
